FAERS Safety Report 6603715-X (Version None)
Quarter: 2010Q1

REPORT INFORMATION
  Report Type: 
  Country: None (occurrence: None)
  Receive Date: 20100226
  Receipt Date: 20090312
  Transmission Date: 20100710
  Serious: No
  Sender: FDA-Public Use
  Company Number: A0748637A

PATIENT
  Sex: Female

DRUGS (8)
  1. LAMICTAL CD [Suspect]
     Indication: BIPOLAR DISORDER
     Dosage: 300MG PER DAY
     Route: 048
     Dates: start: 20071201
  2. PROZAC [Concomitant]
     Dosage: 40MG PER DAY
  3. WELLBUTRIN XL [Concomitant]
  4. AMBIEN CR [Concomitant]
  5. FOLIC ACID [Concomitant]
  6. METFORMIN HCL [Concomitant]
  7. MULTI-VITAMINS [Concomitant]
  8. ELAVIL [Concomitant]
     Dosage: 450MG PER DAY

REACTIONS (2)
  - DRUG EXPOSURE DURING PREGNANCY [None]
  - DRUG INEFFECTIVE [None]
